FAERS Safety Report 8007960-0 (Version None)
Quarter: 2011Q4

REPORT INFORMATION
  Report Type: 
  Country: None (occurrence: None)
  Receive Date: 20111227
  Receipt Date: 20111212
  Transmission Date: 20120403
  Serious: Yes (Other)
  Sender: FDA-Public Use
  Company Number: PHEH2011US011520

PATIENT
  Sex: Male

DRUGS (5)
  1. ACETYLSALICYLIC ACID SRT [Concomitant]
     Dosage: 325 MG, UNK
  2. ZANTAC [Concomitant]
     Dosage: 150 MG, UNK
  3. CRESTOR [Concomitant]
  4. EXELON [Suspect]
     Dosage: 4.6 MG, UNK
     Route: 062
  5. PLAVIX [Concomitant]

REACTIONS (1)
  - TRANSIENT ISCHAEMIC ATTACK [None]
